FAERS Safety Report 12750288 (Version 1)
Quarter: 2016Q3

REPORT INFORMATION
  Report Type: Spontaneous
  Country: JP (occurrence: JP)
  Receive Date: 20160916
  Receipt Date: 20160916
  Transmission Date: 20161109
  Serious: Yes (Other)
  Sender: FDA-Public Use
  Company Number: JP-PFIZER INC-2016289534

PATIENT

DRUGS (2)
  1. SUTENT [Suspect]
     Active Substance: SUNITINIB MALATE
     Indication: GASTROINTESTINAL STROMAL TUMOUR
     Dosage: 50 MG, DAILY, FOUR WEEKS ADMINISTRATION AND TWO WEEKS WASHOUT
     Route: 048
  2. SUTENT [Suspect]
     Active Substance: SUNITINIB MALATE
     Dosage: 37.5 MG, UNK (2 WEEKS ON/1 WEEK OFF SCHEDULE)
     Route: 048

REACTIONS (3)
  - Ascites [Unknown]
  - Weight decreased [Unknown]
  - Platelet count decreased [Unknown]
